FAERS Safety Report 14341723 (Version 4)
Quarter: 2018Q2

REPORT INFORMATION
  Report Type: Report from Study
  Country: DE (occurrence: DE)
  Receive Date: 20180102
  Receipt Date: 20180420
  Transmission Date: 20180711
  Serious: Yes (Death, Hospitalization, Other)
  Sender: FDA-Public Use
  Company Number: DE-ACTELION-A-CH2017-164599

PATIENT
  Age: 67 Year
  Sex: Male

DRUGS (12)
  1. REVATIO [Concomitant]
     Active Substance: SILDENAFIL CITRATE
     Indication: PULMONARY ARTERIAL HYPERTENSION
     Dosage: 20 MG, TID
     Route: 048
  2. DIOVAN [Concomitant]
     Active Substance: VALSARTAN
     Dosage: 80 MG, OD
  3. ALLOPURINOL. [Concomitant]
     Active Substance: ALLOPURINOL
     Dosage: 100 MG, OD
  4. OPSUMIT [Suspect]
     Active Substance: MACITENTAN
     Indication: PULMONARY ARTERIAL HYPERTENSION
     Dosage: 10 MG, OD
     Route: 048
     Dates: start: 20160423, end: 20180218
  5. VELMETIA [Concomitant]
     Active Substance: METFORMIN\SITAGLIPTIN
     Dosage: 50 MG/1 G, OD
  6. SORTIS [Concomitant]
     Active Substance: ATORVASTATIN
     Dosage: 40 MG, OD
  7. XIPAMIDE [Concomitant]
     Active Substance: XIPAMIDE
     Dosage: 20 MG, OD
  8. TOREM [Concomitant]
     Active Substance: TORSEMIDE
     Dosage: 140 MG, QD
  9. ASA-RATIOPHARM [Concomitant]
     Active Substance: ASPIRIN
     Dosage: 100 MG, OD
  10. SPIRONOLACTONE. [Concomitant]
     Active Substance: SPIRONOLACTONE
     Dosage: 25 MG, OD
  11. KALINOR (POTASSIUM CHLORIDE) [Concomitant]
     Active Substance: POTASSIUM CHLORIDE
     Dosage: 40 MMOL, TID
  12. AMBROXOL RATIOPHARM [Concomitant]
     Dosage: 15 MG, TID

REACTIONS (22)
  - Pulmonary oedema [Unknown]
  - Pulmonary valve incompetence [Fatal]
  - Concomitant disease aggravated [Unknown]
  - Pleural effusion [Fatal]
  - Left ventricular hypertrophy [Fatal]
  - Ventricular dyskinesia [Fatal]
  - Oxygen consumption increased [Unknown]
  - Acute kidney injury [Unknown]
  - Left ventricular dysfunction [Fatal]
  - Disease progression [Unknown]
  - Vitamin D deficiency [Unknown]
  - Cardiac failure [Fatal]
  - Mitral valve incompetence [Fatal]
  - Aortic valve incompetence [Fatal]
  - Inferior vena caval occlusion [Fatal]
  - Pulmonary arterial hypertension [Unknown]
  - Pneumonia [Recovering/Resolving]
  - Hypothyroidism [Unknown]
  - Tricuspid valve incompetence [Fatal]
  - Concomitant disease progression [Fatal]
  - Ascites [Fatal]
  - Right ventricular dysfunction [Fatal]

NARRATIVE: CASE EVENT DATE: 20171212
